FAERS Safety Report 22635332 (Version 1)
Quarter: 2023Q2

REPORT INFORMATION
  Report Type: Spontaneous
  Country: US (occurrence: None)
  Receive Date: 20230620
  Receipt Date: 20230620
  Transmission Date: 20230722
  Serious: Yes (Other)
  Sender: FDA-Public Use
  Company Number: None

PATIENT
  Age: 46 Year
  Sex: Female
  Weight: 98.2 kg

DRUGS (1)
  1. TECARTUS [Suspect]
     Active Substance: BREXUCABTAGENE AUTOLEUCEL
     Indication: Acute lymphocytic leukaemia
     Dosage: FREQUENCY : ONCE;?
     Dates: start: 20230612, end: 20230612

REACTIONS (6)
  - Lymphocyte adoptive therapy [None]
  - Pyrexia [None]
  - Headache [None]
  - Chills [None]
  - Nausea [None]
  - Hypoxia [None]

NARRATIVE: CASE EVENT DATE: 20230619
